FAERS Safety Report 9691201 (Version 1)
Quarter: 2013Q4

REPORT INFORMATION
  Report Type: Spontaneous
  Country: GB (occurrence: GB)
  Receive Date: 20131115
  Receipt Date: 20131115
  Transmission Date: 20140711
  Serious: Yes (Other)
  Sender: FDA-Public Use
  Company Number: GB-ABBVIE-13P-167-1167639-00

PATIENT
  Age: 9 Month
  Sex: Male

DRUGS (1)
  1. SODIUM VALPROATE [Suspect]
     Indication: CONVULSION

REACTIONS (3)
  - Convulsion [Unknown]
  - Drug ineffective [Unknown]
  - Partial seizures [Unknown]
